FAERS Safety Report 18369278 (Version 1)
Quarter: 2020Q4

REPORT INFORMATION
  Report Type: Spontaneous
  Country: US (occurrence: US)
  Receive Date: 20201012
  Receipt Date: 20201012
  Transmission Date: 20210114
  Serious: Yes (Other)
  Sender: FDA-Public Use
  Company Number: US-009507513-2010USA002898

PATIENT
  Sex: Male

DRUGS (1)
  1. PROSCAR [Suspect]
     Active Substance: FINASTERIDE
     Indication: MICTURITION URGENCY
     Dosage: 1 DOSAGE FORM, HS (REPORTED AS ^1 AT BEDTIME^)
     Route: 048
     Dates: start: 202007, end: 20201004

REACTIONS (3)
  - Genital disorder [Not Recovered/Not Resolved]
  - Erectile dysfunction [Not Recovered/Not Resolved]
  - Genital pain [Not Recovered/Not Resolved]

NARRATIVE: CASE EVENT DATE: 202007
